FAERS Safety Report 8518601-8 (Version None)
Quarter: 2012Q3

REPORT INFORMATION
  Report Type: 
  Country: None (occurrence: None)
  Receive Date: 20120718
  Receipt Date: 20110825
  Transmission Date: 20120928
  Serious: Yes (Other)
  Sender: FDA-Public Use
  Company Number: US-BRISTOL-MYERS SQUIBB COMPANY-15575459

PATIENT
  Age: 45 Year
  Sex: Female
  Weight: 73 kg

DRUGS (8)
  1. ACIDOPHILUS [Concomitant]
  2. FOLIC ACID [Concomitant]
  3. METHOTREXATE [Concomitant]
  4. COUMADIN [Suspect]
  5. PERCOCET [Concomitant]
  6. CALCITRATE [Concomitant]
  7. ORENCIA [Suspect]
     Dates: start: 20110201
  8. VITAMIN TAB [Concomitant]

REACTIONS (1)
  - INTERNATIONAL NORMALISED RATIO DECREASED [None]
